FAERS Safety Report 5398877-9 (Version None)
Quarter: 2007Q3

REPORT INFORMATION
  Report Type: 
  Country: None (occurrence: None)
  Receive Date: 20070727
  Receipt Date: 20070718
  Transmission Date: 20080115
  Serious: Yes (Hospitalization, Disabling, Other)
  Sender: FDA-Public Use
  Company Number: PHFR2007GB02209

PATIENT
  Age: 62 Year
  Sex: Female
  Weight: 145 kg

DRUGS (4)
  1. CARBAMAZEPINE [Suspect]
     Indication: CONVULSION
     Route: 048
  2. CITALOPRAM HYDROBROMIDE [Concomitant]
     Indication: DEPRESSION
     Dosage: 20MG/DAY
     Route: 048
  3. LEVETIRACETAM [Concomitant]
     Indication: CONVULSION
     Route: 048
  4. ROSUVASTATIN [Concomitant]
     Indication: HYPERCHOLESTEROLAEMIA
     Dosage: 10 MG, QD
     Route: 048

REACTIONS (3)
  - LOSS OF CONSCIOUSNESS [None]
  - MOBILITY DECREASED [None]
  - VOMITING [None]
